FAERS Safety Report 4571613-1 (Version None)
Quarter: 2005Q1

REPORT INFORMATION
  Report Type: 
  Country: None (occurrence: None)
  Receive Date: 20050203
  Receipt Date: 20050203
  Transmission Date: 20050727
  Serious: No
  Sender: FDA-Public Use
  Company Number: None

PATIENT
  Sex: Female
  Weight: 65.7716 kg

DRUGS (2)
  1. KLONOPIN [Suspect]
     Indication: AGORAPHOBIA
     Dosage: 1 MG TABS (5 A DAY)
  2. KLONOPIN [Suspect]
     Indication: ANXIETY DISORDER
     Dosage: 1 MG TABS (5 A DAY)

REACTIONS (2)
  - DRUG INEFFECTIVE [None]
  - PHARMACEUTICAL PRODUCT COMPLAINT [None]
